FAERS Safety Report 18951568 (Version 1)
Quarter: 2021Q1

REPORT INFORMATION
  Report Type: Spontaneous
  Country: GB (occurrence: GB)
  Receive Date: 20210301
  Receipt Date: 20210301
  Transmission Date: 20210420
  Serious: Yes (Other)
  Sender: FDA-Public Use
  Company Number: GB-SUN PHARMACEUTICAL INDUSTRIES LTD-2021RR-282995

PATIENT
  Sex: Female

DRUGS (4)
  1. OLANZAPINE. [Suspect]
     Active Substance: OLANZAPINE
     Dosage: 2.5 MG ON
     Route: 065
  2. MEMANTINE. [Suspect]
     Active Substance: MEMANTINE
     Indication: DEMENTIA
     Dosage: 5 MILLIGRAM, OD
     Route: 065
  3. OLANZAPINE. [Suspect]
     Active Substance: OLANZAPINE
     Indication: PRODUCT USED FOR UNKNOWN INDICATION
     Dosage: 2.5 MG NOCTE
     Route: 065
  4. OLANZAPINE. [Suspect]
     Active Substance: OLANZAPINE
     Dosage: 5 MG ON
     Route: 065

REACTIONS (2)
  - Condition aggravated [Unknown]
  - Sedation [Unknown]
